FAERS Safety Report 4306778-X (Version None)
Quarter: 2004Q1

REPORT INFORMATION
  Report Type: 
  Country: None (occurrence: None)
  Receive Date: 20040225
  Receipt Date: 20040211
  Transmission Date: 20041129
  Serious: Yes (Hospitalization)
  Sender: FDA-Public Use
  Company Number: 2004-DE-00698GD

PATIENT
  Age: 56 Year
  Sex: Female

DRUGS (1)
  1. LITHIUM CARBONATE [Suspect]
     Indication: BIPOLAR DISORDER
     Dosage: 600 MG (NR, ONCE), NR

REACTIONS (11)
  - ABNORMAL BEHAVIOUR [None]
  - AGITATION [None]
  - CONFUSIONAL STATE [None]
  - DISINHIBITION [None]
  - DYSARTHRIA [None]
  - HYPERTHYROIDISM [None]
  - INCOHERENT [None]
  - INSOMNIA [None]
  - PITTING OEDEMA [None]
  - REBOUND EFFECT [None]
  - RESTLESSNESS [None]
